FAERS Safety Report 12338967 (Version 1)
Quarter: 2016Q2

REPORT INFORMATION
  Report Type: Spontaneous
  Country: US (occurrence: US)
  Receive Date: 20160505
  Receipt Date: 20160505
  Transmission Date: 20160815
  Serious: No
  Sender: FDA-Public Use
  Company Number: US-PFIZER INC-2016197217

PATIENT
  Weight: 52.16 kg

DRUGS (4)
  1. ADVIL [Suspect]
     Active Substance: IBUPROFEN
     Indication: HEADACHE
  2. GLUTEN [Suspect]
     Active Substance: WHEAT GLUTEN
  3. ADVIL [Suspect]
     Active Substance: IBUPROFEN
     Indication: BACK PAIN
     Dosage: TWO 200 MG CAPSULES AT A TIME
     Route: 048
  4. ADVIL [Suspect]
     Active Substance: IBUPROFEN
     Indication: ARTHRALGIA
     Dosage: THREE LIQUIGELS 3 TIMES A DAY

REACTIONS (3)
  - Product use issue [Unknown]
  - Inflammation [Unknown]
  - Arthralgia [Unknown]
